FAERS Safety Report 5423749-0 (Version None)
Quarter: 2007Q3

REPORT INFORMATION
  Report Type: 
  Country: None (occurrence: None)
  Receive Date: 20070727
  Receipt Date: 20040624
  Transmission Date: 20080115
  Serious: Yes (Death)
  Sender: FDA-Public Use
  Company Number: THYM-10236

PATIENT
  Age: 38 Year
  Sex: Female
  Weight: 58 kg

DRUGS (7)
  1. THYMOGLOBULIN [Suspect]
     Indication: STEM CELL TRANSPLANT
     Dosage: 0.5 MG/KG DAILY IV
     Route: 042
     Dates: start: 20040215, end: 20040215
  2. THYMOGLOBULIN [Suspect]
     Indication: STEM CELL TRANSPLANT
     Dosage: 2.5 MG/KG DAILY IV
     Route: 042
     Dates: start: 20040216, end: 20040216
  3. THYMOGLOBULIN [Suspect]
     Indication: STEM CELL TRANSPLANT
     Dosage: 3 MG/KG DAILY IV
     Route: 042
     Dates: start: 20040217, end: 20040217
  4. TREOSULFAN [Concomitant]
  5. FLUDARABINE PHOSPHATE [Concomitant]
  6. CYCLOSPORINE [Concomitant]
  7. METHOTREXATE [Concomitant]

REACTIONS (2)
  - EPSTEIN-BARR VIRUS INFECTION [None]
  - LYMPHOPROLIFERATIVE DISORDER [None]
